FAERS Safety Report 18891537 (Version 1)
Quarter: 2021Q1

REPORT INFORMATION
  Report Type: Spontaneous
  Country: SE (occurrence: SE)
  Receive Date: 20210215
  Receipt Date: 20210215
  Transmission Date: 20210420
  Serious: Yes (Other)
  Sender: FDA-Public Use
  Company Number: SE-009507513-2102SWE003827

PATIENT
  Age: 26 Year
  Sex: Female

DRUGS (5)
  1. LERGIGAN [Concomitant]
     Dosage: WHEN NEEDED
  2. MIRTAZAPINE. [Suspect]
     Active Substance: MIRTAZAPINE
     Indication: DEPRESSED MOOD
     Dosage: UNK
  3. MIRTAZAPINE. [Suspect]
     Active Substance: MIRTAZAPINE
     Indication: ANXIETY
     Dosage: 30 MILLIGRAM, QD
     Dates: start: 20201215, end: 20210111
  4. PRONAXEN [Concomitant]
     Active Substance: NAPROXEN
     Dosage: 1 UNK, PRN (AS NECESSARY)
  5. OMEPRAZOLE. [Concomitant]
     Active Substance: OMEPRAZOLE
     Dosage: 1 UNK, QD

REACTIONS (1)
  - Arrhythmia [Recovered/Resolved]

NARRATIVE: CASE EVENT DATE: 20201217
